FAERS Safety Report 17789502 (Version 6)
Quarter: 2021Q2

REPORT INFORMATION
  Report Type: Spontaneous
  Country: JP (occurrence: JP)
  Receive Date: 20200515
  Receipt Date: 20210603
  Transmission Date: 20210716
  Serious: Yes (Hospitalization, Other)
  Sender: FDA-Public Use
  Company Number: JP-AMGEN-JPNSP2020076371

PATIENT
  Age: 83 Year
  Sex: Male
  Weight: 60.5 kg

DRUGS (21)
  1. PARSABIV [Suspect]
     Active Substance: ETELCALCETIDE HYDROCHLORIDE
     Dosage: 12.5 MG, Q56H
     Route: 010
     Dates: start: 20200418, end: 20210311
  2. FESIN [SACCHARATED IRON OXIDE] [Concomitant]
     Active Substance: IRON SUCROSE
     Dosage: 40 MG, QWK
     Route: 065
  3. EPOGIN [Concomitant]
     Active Substance: ERYTHROPOIETIN
     Dosage: 6000 UNIT, QW
     Route: 065
     Dates: start: 20200204, end: 20200523
  4. EPOGIN [Concomitant]
     Active Substance: ERYTHROPOIETIN
     Dosage: 9000 UNIT, QW
     Route: 065
     Dates: start: 20210420
  5. PRECIPITATED CALCIUM CARBONATE [Concomitant]
     Active Substance: CALCIUM CARBONATE
     Dosage: 3000 MG, EVERYDAY
     Route: 065
     Dates: start: 20191105
  6. PRECIPITATED CALCIUM CARBONATE [Concomitant]
     Active Substance: CALCIUM CARBONATE
     Dosage: 1500 MG, EVERYDAY
     Route: 065
     Dates: start: 20190924, end: 20191104
  7. EPOGIN [Concomitant]
     Active Substance: ERYTHROPOIETIN
     Dosage: 6000 UNIT, QW
     Route: 065
     Dates: start: 20190820, end: 20191024
  8. EPOGIN [Concomitant]
     Active Substance: ERYTHROPOIETIN
     Dosage: 4500 UNIT, QW
     Route: 065
     Dates: start: 20200808, end: 20201020
  9. ALFACALCIDOL [Concomitant]
     Active Substance: ALFACALCIDOL
     Dosage: 0.5 UG, EVERYDAY
     Route: 048
     Dates: end: 20190729
  10. REGPARA [Concomitant]
     Active Substance: CINACALCET HYDROCHLORIDE
     Dosage: 50 MG, EVERYDAY
     Route: 048
     Dates: end: 20190627
  11. ALFACALCIDOL [Concomitant]
     Active Substance: ALFACALCIDOL
     Dosage: 0.25 UG, EVERYDAY
     Route: 048
     Dates: start: 20190730, end: 20210322
  12. EPOGIN [Concomitant]
     Active Substance: ERYTHROPOIETIN
     Dosage: 3000 UNIT, QW
     Route: 065
     Dates: start: 20191029, end: 20200128
  13. EPOGIN [Concomitant]
     Active Substance: ERYTHROPOIETIN
     Dosage: 3000 UNIT, QW
     Route: 065
     Dates: start: 20200526, end: 20200804
  14. EPOGIN [Concomitant]
     Active Substance: ERYTHROPOIETIN
     Dosage: 6000 UNIT, QW
     Route: 065
     Dates: start: 20201024, end: 20210417
  15. PARSABIV [Suspect]
     Active Substance: ETELCALCETIDE HYDROCHLORIDE
     Dosage: 7.5 MG, Q56H
     Route: 010
     Dates: start: 20190810, end: 20200118
  16. PARSABIV [Suspect]
     Active Substance: ETELCALCETIDE HYDROCHLORIDE
     Dosage: 15 MG, Q56H
     Route: 010
     Dates: start: 20210313
  17. P?TOL [SUCROFERRIC OXYHYDROXIDE] [Concomitant]
     Active Substance: SUCROFERRIC OXYHYDROXIDE
     Dosage: 500 MG, EVERYDAY
     Route: 065
     Dates: start: 20190622, end: 20190923
  18. PARSABIV [Suspect]
     Active Substance: ETELCALCETIDE HYDROCHLORIDE
     Indication: HYPERPARATHYROIDISM SECONDARY
     Dosage: 5 MG, Q56H
     Route: 010
     Dates: start: 20190627, end: 20190808
  19. PARSABIV [Suspect]
     Active Substance: ETELCALCETIDE HYDROCHLORIDE
     Dosage: 10 MG, Q56H
     Route: 010
     Dates: start: 20200121, end: 20200416
  20. PRECIPITATED CALCIUM CARBONATE [Concomitant]
     Active Substance: CALCIUM CARBONATE
     Dosage: 2000 MG, EVERYDAY
     Route: 065
  21. EPOGIN [Concomitant]
     Active Substance: ERYTHROPOIETIN
     Dosage: 9000 UNIT, QW
     Route: 065
     Dates: end: 20190817

REACTIONS (1)
  - Atrial fibrillation [Recovering/Resolving]

NARRATIVE: CASE EVENT DATE: 20200405
